FAERS Safety Report 9967751 (Version 1)
Quarter: 2014Q1

REPORT INFORMATION
  Report Type: Report from Study
  Country: US (occurrence: US)
  Receive Date: 20140306
  Receipt Date: 20140306
  Transmission Date: 20141002
  Serious: No
  Sender: FDA-Public Use
  Company Number: US-ABBVIE-13P-163-1138246-00

PATIENT
  Sex: Female

DRUGS (13)
  1. HUMIRA [Suspect]
     Indication: RHEUMATOID ARTHRITIS
  2. MULTIVITAMIN [Concomitant]
     Indication: PRODUCT USED FOR UNKNOWN INDICATION
     Dosage: DAILY
  3. SUPPLEMENTS [Concomitant]
     Indication: PRODUCT USED FOR UNKNOWN INDICATION
  4. OMEGA 3 EPA AND DHA [Concomitant]
     Indication: PRODUCT USED FOR UNKNOWN INDICATION
  5. OMEGA 7 [Concomitant]
     Indication: PRODUCT USED FOR UNKNOWN INDICATION
  6. MACA POWDER CAPSULE [Concomitant]
     Indication: PRODUCT USED FOR UNKNOWN INDICATION
  7. VITAMIN D3 [Concomitant]
     Indication: PRODUCT USED FOR UNKNOWN INDICATION
  8. POTASSIUM (K1 AND K2) [Concomitant]
     Indication: PRODUCT USED FOR UNKNOWN INDICATION
  9. RODIOLA [Concomitant]
     Indication: PRODUCT USED FOR UNKNOWN INDICATION
  10. VITAMIN D/CALCIUM/MAGNISIUM [Concomitant]
     Indication: PRODUCT USED FOR UNKNOWN INDICATION
  11. URGENT ENERGY VITAMIN [Concomitant]
     Indication: PRODUCT USED FOR UNKNOWN INDICATION
  12. GREEN FOOD CAPSULE [Concomitant]
     Indication: PRODUCT USED FOR UNKNOWN INDICATION
  13. PROBIOTICS [Concomitant]
     Indication: PRODUCT USED FOR UNKNOWN INDICATION

REACTIONS (8)
  - Bone density decreased [Unknown]
  - Drug effect decreased [Not Recovered/Not Resolved]
  - Oral candidiasis [Unknown]
  - Dermatitis [Unknown]
  - Skin bacterial infection [Unknown]
  - Drug ineffective [Unknown]
  - Rheumatoid arthritis [Unknown]
  - Product quality issue [Unknown]
